FAERS Safety Report 8114737-4 (Version None)
Quarter: 2012Q1

REPORT INFORMATION
  Report Type: 
  Country: None (occurrence: None)
  Receive Date: 20120206
  Receipt Date: 20111213
  Transmission Date: 20120608
  Serious: No
  Sender: FDA-Public Use
  Company Number: US-MYLANLABS-2011S1025770

PATIENT
  Age: 35 Year
  Sex: Male

DRUGS (7)
  1. DIAZEPAM [Concomitant]
     Route: 048
  2. FLONASE [Concomitant]
     Route: 045
  3. MORPHINE SULFATE [Suspect]
     Route: 048
     Dates: start: 20111205
  4. OXYCODONE HCL [Concomitant]
     Route: 048
  5. MORPHINE SULFATE [Suspect]
     Indication: PAIN
     Route: 048
     Dates: start: 20111205
  6. EFFEXOR [Concomitant]
     Route: 048
  7. PRILOSEC [Concomitant]
     Route: 048

REACTIONS (1)
  - VOMITING [None]
